FAERS Safety Report 7255209-9 (Version None)
Quarter: 2011Q1

REPORT INFORMATION
  Report Type: 
  Country: None (occurrence: None)
  Receive Date: 20110129
  Receipt Date: 20100223
  Transmission Date: 20110831
  Serious: Yes (Other)
  Sender: FDA-Public Use
  Company Number: US-ABBOTT-10P-163-0628317-00

PATIENT
  Sex: Female
  Weight: 53.572 kg

DRUGS (5)
  1. HUMIRA [Suspect]
     Route: 058
  2. HUMIRA [Suspect]
     Route: 058
     Dates: end: 20090101
  3. CELEBREX [Concomitant]
     Indication: RHEUMATOID ARTHRITIS
  4. HUMIRA [Suspect]
     Indication: RHEUMATOID ARTHRITIS
     Dates: start: 20060101
  5. HUMIRA [Suspect]

REACTIONS (4)
  - OSTEOARTHRITIS [None]
  - MALIGNANT MELANOMA [None]
  - OSTEOPENIA [None]
  - INCORRECT DOSE ADMINISTERED [None]
